FAERS Safety Report 5953013-2 (Version None)
Quarter: 2008Q4

REPORT INFORMATION
  Report Type: 
  Country: None (occurrence: None)
  Receive Date: 20081114
  Receipt Date: 20080826
  Transmission Date: 20090506
  Serious: Yes (Hospitalization, Disabling)
  Sender: FDA-Public Use
  Company Number: US-BRISTOL-MYERS SQUIBB COMPANY-14295000

PATIENT
  Age: 38 Year
  Sex: Female

DRUGS (2)
  1. IXEMPRA KIT [Suspect]
     Route: 061
  2. NEULASTA [Concomitant]

REACTIONS (3)
  - BACTERIAL SEPSIS [None]
  - DERMATITIS [None]
  - MUCOSAL INFLAMMATION [None]
